FAERS Safety Report 20324101 (Version 1)
Quarter: 2022Q1

REPORT INFORMATION
  Report Type: Spontaneous
  Country: ZA (occurrence: ZA)
  Receive Date: 20220111
  Receipt Date: 20220111
  Transmission Date: 20220423
  Serious: Yes (Other)
  Sender: FDA-Public Use
  Company Number: ZA-ORGANON-O2201ZAF000562

PATIENT
  Age: 26 Year
  Sex: Female

DRUGS (2)
  1. ETONOGESTREL [Suspect]
     Active Substance: ETONOGESTREL
     Indication: Contraception
     Dosage: 1 IMPLANT 3 YEARLY
     Route: 058
     Dates: start: 20200109, end: 20211022
  2. METRONIDAZOLE [Suspect]
     Active Substance: METRONIDAZOLE
     Indication: Vulvovaginitis trichomonal
     Dosage: 2 GRAM, ONCE
     Route: 048
     Dates: start: 20210913, end: 20210913

REACTIONS (9)
  - Pregnancy with implant contraceptive [Not Recovered/Not Resolved]
  - Oedema peripheral [Unknown]
  - Device issue [Recovered/Resolved]
  - Unintended pregnancy [Not Recovered/Not Resolved]
  - Breast tenderness [Unknown]
  - Complication of device removal [Recovered/Resolved]
  - Diarrhoea [Unknown]
  - Headache [Unknown]
  - Back pain [Unknown]

NARRATIVE: CASE EVENT DATE: 20211007
